FAERS Safety Report 24559390 (Version 1)
Quarter: 2024Q4

REPORT INFORMATION
  Report Type: Report from Study
  Country: CN (occurrence: CN)
  Receive Date: 20241029
  Receipt Date: 20241029
  Transmission Date: 20250114
  Serious: Yes (Hospitalization, Other)
  Sender: SANDOZ
  Company Number: CN-BEIGENE-BGN-2023-005231

PATIENT
  Age: 80 Year
  Sex: Male
  Weight: 75 kg

DRUGS (21)
  1. CARBOPLATIN [Suspect]
     Active Substance: CARBOPLATIN
     Indication: Small cell lung cancer
     Dosage: 536.1 MG, Q3W
     Route: 042
     Dates: start: 20210112, end: 20210319
  2. ETOPOSIDE [Suspect]
     Active Substance: ETOPOSIDE
     Indication: Small cell lung cancer
     Dosage: 181 MG, Q3W
     Route: 042
     Dates: start: 20210112, end: 20210317
  3. CEFTIZOXIME SODIUM [Concomitant]
     Active Substance: CEFTIZOXIME SODIUM
     Dosage: UNK, STRENGTH (0.5 G)
     Route: 065
  4. CEFTIZOXIME SODIUM [Concomitant]
     Active Substance: CEFTIZOXIME SODIUM
     Dosage: UNK, STRENGTH (1 G)
     Route: 065
  5. CEFTIZOXIME SODIUM [Concomitant]
     Active Substance: CEFTIZOXIME SODIUM
     Indication: Pyrexia
     Dosage: UNK, STRENGTH (1000 MG)
     Route: 065
     Dates: start: 20230526
  6. CEFTIZOXIME SODIUM [Concomitant]
     Active Substance: CEFTIZOXIME SODIUM
     Dosage: UNK, STRENGTH (2 G)
     Route: 065
  7. CEFTIZOXIME SODIUM [Concomitant]
     Active Substance: CEFTIZOXIME SODIUM
     Dosage: UNK, STRENGTH (500 MG)
     Route: 065
  8. CEFTIZOXIME SODIUM [Concomitant]
     Active Substance: CEFTIZOXIME SODIUM
     Dosage: UNK, STRENGTH (UNK)
     Route: 065
  9. RIBAVIRIN [Concomitant]
     Active Substance: RIBAVIRIN
     Dosage: UNK, STRENGTH (0.1 G)
     Route: 065
  10. RIBAVIRIN [Concomitant]
     Active Substance: RIBAVIRIN
     Dosage: UNK, STRENGTH (0.15 G)
     Route: 065
  11. RIBAVIRIN [Concomitant]
     Active Substance: RIBAVIRIN
     Dosage: UNK, STRENGTH (0.5 %)
     Route: 065
  12. RIBAVIRIN [Concomitant]
     Active Substance: RIBAVIRIN
     Dosage: UNK, STRENGTH (0.5 MG)
     Route: 065
  13. RIBAVIRIN [Concomitant]
     Active Substance: RIBAVIRIN
     Dosage: UNK, STRENGTH (100 MG)
     Route: 065
  14. RIBAVIRIN [Concomitant]
     Active Substance: RIBAVIRIN
     Dosage: UNK, STRENGTH (100 MG/ML)
     Route: 065
  15. RIBAVIRIN [Concomitant]
     Active Substance: RIBAVIRIN
     Indication: Pyrexia
     Dosage: UNK, STRENGTH (150 MG)
     Route: 065
     Dates: start: 20230526
  16. RIBAVIRIN [Concomitant]
     Active Substance: RIBAVIRIN
     Dosage: UNK, STRENGTH (199 MG/ML)
     Route: 065
  17. RIBAVIRIN [Concomitant]
     Active Substance: RIBAVIRIN
     Dosage: UNK, STRENGTH (2 MG)
     Route: 065
  18. RIBAVIRIN [Concomitant]
     Active Substance: RIBAVIRIN
     Dosage: UNK, STRENGTH (20 MG)
     Route: 065
  19. RIBAVIRIN [Concomitant]
     Active Substance: RIBAVIRIN
     Dosage: UNK, STRENGTH (200 MG)
     Route: 065
  20. RIBAVIRIN [Concomitant]
     Active Substance: RIBAVIRIN
     Dosage: UNK, STRENGTH (50 MG)
     Route: 065
  21. RIBAVIRIN [Concomitant]
     Active Substance: RIBAVIRIN
     Dosage: UNK, STRENGTH (UNK)
     Route: 065

REACTIONS (1)
  - COVID-19 pneumonia [Recovered/Resolved]

NARRATIVE: CASE EVENT DATE: 20230604
